FAERS Safety Report 6379024-3 (Version None)
Quarter: 2009Q3

REPORT INFORMATION
  Report Type: 
  Country: None (occurrence: None)
  Receive Date: 20090928
  Receipt Date: 20090921
  Transmission Date: 20100115
  Serious: Yes (Other)
  Sender: FDA-Public Use
  Company Number: PHHY2009NL40631

PATIENT
  Sex: Male

DRUGS (5)
  1. TEGRETOL-XR [Suspect]
     Indication: ATTENTION DEFICIT/HYPERACTIVITY DISORDER
     Dosage: 200 MG
     Route: 048
     Dates: start: 20090829, end: 20090903
  2. TEGRETOL-XR [Suspect]
     Dosage: 100 MG
     Route: 048
  3. MELATONIN [Concomitant]
     Dosage: 3 MG
     Dates: start: 20040902
  4. RISPERDAL [Concomitant]
     Dosage: 1 MG
     Dates: start: 20041112
  5. RISPERDAL [Concomitant]
     Dosage: 1 MG, BID

REACTIONS (2)
  - SUICIDAL IDEATION [None]
  - TIC [None]
